FAERS Safety Report 17971773 (Version 1)
Quarter: 2020Q3

REPORT INFORMATION
  Report Type: Report from Study
  Country: RU (occurrence: RU)
  Receive Date: 20200702
  Receipt Date: 20200702
  Transmission Date: 20201103
  Serious: Yes (Death, Other)
  Sender: FDA-Public Use
  Company Number: RU-ADIENNEP-2020AD000356

PATIENT
  Age: 11 Month

DRUGS (5)
  1. THYMOGLOBULIN [Suspect]
     Active Substance: LAPINE T-LYMPHOCYTE IMMUNE GLOBULIN
     Indication: ALLOGENIC STEM CELL TRANSPLANTATION
     Dosage: 5 MG/KG
  2. THIOTEPA. [Suspect]
     Active Substance: THIOTEPA
     Indication: ALLOGENIC STEM CELL TRANSPLANTATION
     Dosage: 10 MG/KG
  3. RITUXIMAB. [Suspect]
     Active Substance: RITUXIMAB
     Indication: ALLOGENIC STEM CELL TRANSPLANTATION
     Dosage: 100 MG
  4. TREOSULFAN [Suspect]
     Active Substance: TREOSULFAN
     Indication: ALLOGENIC STEM CELL TRANSPLANTATION
     Dosage: 36000 MG/M2
  5. FLUDARABINE [Suspect]
     Active Substance: FLUDARABINE PHOSPHATE
     Indication: ALLOGENIC STEM CELL TRANSPLANTATION
     Dosage: 150 MG/M2

REACTIONS (1)
  - Klebsiella sepsis [Fatal]
